FAERS Safety Report 4658894-0 (Version None)
Quarter: 2005Q2

REPORT INFORMATION
  Report Type: 
  Country: None (occurrence: None)
  Receive Date: 20050509
  Receipt Date: 20050426
  Transmission Date: 20051028
  Serious: Yes (Death)
  Sender: FDA-Public Use
  Company Number: 2005040038

PATIENT
  Age: 58 Year
  Sex: Female

DRUGS (12)
  1. AROMASIN [Suspect]
     Indication: BREAST CANCER
     Dosage: 25 MG, ORAL
     Route: 048
     Dates: start: 20041203, end: 20050223
  2. MORPHINE SULFATE [Concomitant]
  3. KETOPROFEN [Concomitant]
  4. PYRIDOXAL (PYRIDOXAL) [Concomitant]
  5. CAPECITABINE (CAPECITABINE) [Concomitant]
  6. ANASTROZOLE (ANASTROZOLE) [Concomitant]
  7. DOXORUBICIN HYDROCHLORIDE [Concomitant]
  8. CYCLOPHOSPHAMIDE [Concomitant]
  9. FLUOROURACIL [Concomitant]
  10. TAMOXIFEN CITRATE [Concomitant]
  11. PACLITAXEL [Concomitant]
  12. DOCETAXEL (DOCETAXEL) [Concomitant]

REACTIONS (3)
  - CARDIAC ARREST [None]
  - COUGH [None]
  - DYSPNOEA [None]
